FAERS Safety Report 11079190 (Version 5)
Quarter: 2015Q2

REPORT INFORMATION
  Report Type: Spontaneous
  Country: IT (occurrence: IT)
  Receive Date: 20150430
  Receipt Date: 20150608
  Transmission Date: 20150821
  Serious: Yes (Hospitalization)
  Sender: FDA-Public Use
  Company Number: IT-009507513-1504ITA017346

PATIENT
  Age: 37 Year
  Sex: Female

DRUGS (4)
  1. ESMERON [Suspect]
     Active Substance: ROCURONIUM BROMIDE
     Indication: INDUCTION OF ANAESTHESIA
     Dosage: 40 MG, TOTAL (STRENGTH: 10MG/ML)
     Route: 042
     Dates: start: 20150330, end: 20150330
  2. PROPOFOL FRESENIUS KABI [Suspect]
     Active Substance: PROPOFOL
     Indication: INDUCTION OF ANAESTHESIA
     Dosage: 140 MG, TOTAL (STRENGTH: 10MG/ML)
     Route: 042
     Dates: start: 20150330, end: 20150330
  3. CEFTRIAXONE SODIUM. [Suspect]
     Active Substance: CEFTRIAXONE SODIUM
     Indication: ANTIBIOTIC PROPHYLAXIS
     Dosage: 2 G, TOTAL
     Route: 042
     Dates: start: 20150330, end: 20150330
  4. FENTANEST [Suspect]
     Active Substance: FENTANYL CITRATE
     Indication: INDUCTION OF ANAESTHESIA
     Dosage: 100 MICROGRAM, TOTAL (STRENGTH: 0.1MG/2ML)
     Route: 042
     Dates: start: 20150330, end: 20150330

REACTIONS (4)
  - Erythema [Recovered/Resolved]
  - Piloerection [Recovered/Resolved]
  - Tachycardia [Recovered/Resolved]
  - Hypotension [Recovered/Resolved]

NARRATIVE: CASE EVENT DATE: 20150330
